FAERS Safety Report 10172187 (Version 1)
Quarter: 2014Q2

REPORT INFORMATION
  Report Type: Spontaneous
  Country: US (occurrence: US)
  Receive Date: 20140515
  Receipt Date: 20140515
  Transmission Date: 20141212
  Serious: Yes (Other)
  Sender: FDA-Public Use
  Company Number: PHEH2014US009556

PATIENT
  Sex: Female

DRUGS (12)
  1. RECLAST [Suspect]
     Dosage: UNK
     Route: 042
  2. RECLAST [Suspect]
     Dosage: UNK
     Route: 042
  3. RECLAST [Suspect]
     Dosage: UNK
     Route: 042
  4. RECLAST [Suspect]
     Dosage: UNK
     Route: 042
  5. RECLAST [Suspect]
     Dosage: UNK
     Route: 042
  6. SYMBICORT [Suspect]
     Indication: HYPERSENSITIVITY
     Dosage: UNK
  7. SYMBICORT [Suspect]
     Dosage: UNK
  8. SYMBICORT [Suspect]
     Dosage: UNK
  9. SYMBICORT [Suspect]
     Dosage: UNK
  10. SYMBICORT [Suspect]
     Dosage: UNK
  11. AP CALCIUM+VIT D [Concomitant]
     Dosage: UNK
  12. FORTEO [Concomitant]
     Dosage: UNK

REACTIONS (6)
  - Upper respiratory tract infection [Unknown]
  - Fracture [Unknown]
  - Glaucoma [Unknown]
  - Hyperacusis [Unknown]
  - Migraine [Unknown]
  - Hypersensitivity [Unknown]
